FAERS Safety Report 8623611-6 (Version None)
Quarter: 2012Q3

REPORT INFORMATION
  Report Type: 
  Country: None (occurrence: None)
  Receive Date: 20120827
  Receipt Date: 20120827
  Transmission Date: 20120928
  Serious: Yes (Other)
  Sender: FDA-Public Use
  Company Number: HU-UCBSA-063583

PATIENT
  Age: 37 Year
  Sex: Female
  Weight: 87 kg

DRUGS (2)
  1. CERTOLIZUMAB PEGOL [Suspect]
     Indication: CROHN'S DISEASE
     Route: 058
     Dates: start: 20090202, end: 20120529
  2. SULFASALAZINE [Concomitant]
     Indication: CROHN'S DISEASE
     Dosage: 3000 MG 3X
     Route: 048
     Dates: start: 20081220

REACTIONS (3)
  - PREGNANCY [None]
  - ABORTION [None]
  - PREGNANCY WITH CONTRACEPTIVE DEVICE [None]
